FAERS Safety Report 4829857-7 (Version None)
Quarter: 2005Q4

REPORT INFORMATION
  Report Type: 
  Country: None (occurrence: None)
  Receive Date: 20051115
  Receipt Date: 20051103
  Transmission Date: 20060501
  Serious: Yes (Life-Threatening, Hospitalization, Other)
  Sender: FDA-Public Use
  Company Number: 2005116606

PATIENT
  Age: 76 Year
  Sex: Female

DRUGS (8)
  1. ZITHROMAX [Suspect]
     Indication: PNEUMONIA
     Dosage: 500 MG ORAL
     Route: 048
     Dates: start: 20050715, end: 20050715
  2. DYAZIDE [Concomitant]
  3. TOPROL (METOPROLOL) [Concomitant]
  4. FOSAMAX [Concomitant]
  5. ASPIRIN [Concomitant]
  6. LIBRAX [Concomitant]
  7. NEXIUM [Concomitant]
  8. MIACALCIN [Concomitant]

REACTIONS (3)
  - BONE MARROW FAILURE [None]
  - HAEMORRHAGE [None]
  - VIRAL INFECTION [None]
